FAERS Safety Report 7883575-X (Version None)
Quarter: 2011Q4

REPORT INFORMATION
  Report Type: 
  Country: None (occurrence: None)
  Receive Date: 20111102
  Receipt Date: 20100618
  Transmission Date: 20120403
  Serious: No
  Sender: FDA-Public Use
  Company Number: US-BAYER-201026071NA

PATIENT
  Sex: Female

DRUGS (2)
  1. SYMBICORT [Concomitant]
  2. AVELOX [Suspect]
     Dosage: UNK
     Dates: start: 20100617, end: 20100618

REACTIONS (1)
  - PARAESTHESIA [None]
